FAERS Safety Report 9295954 (Version 1)
Quarter: 2013Q1

REPORT INFORMATION
  Report Type: Spontaneous
  Country: US (occurrence: None)
  Receive Date: 20121231
  Receipt Date: 20121231
  Transmission Date: 20140127
  Serious: Yes (Other)
  Sender: FDA-Public Use
  Company Number: RB-44744-2012

PATIENT
  Age: 68 Year
  Sex: Male

DRUGS (1)
  1. SUBOXONE [Suspect]
     Indication: PRODUCT USED FOR UNKNOWN INDICATION
     Dosage: (SUBOXONE FILM ; DOSING DETAILS PROVIDED  UNKNOWN)

REACTIONS (5)
  - Feeling abnormal [None]
  - Drug withdrawal syndrome [None]
  - Diarrhoea [None]
  - Migraine [None]
  - Activities of daily living impaired [None]
